FAERS Safety Report 4720807-0 (Version None)
Quarter: 2005Q3

REPORT INFORMATION
  Report Type: 
  Country: None (occurrence: None)
  Receive Date: 20050719
  Receipt Date: 20050705
  Transmission Date: 20060218
  Serious: Yes (Hospitalization, Other)
  Sender: FDA-Public Use
  Company Number: 2005100396

PATIENT
  Age: 72 Year
  Sex: Male

DRUGS (15)
  1. CELEBREX [Suspect]
     Indication: ILL-DEFINED DISORDER
     Dosage: 200 MG (200 MG, 1 IN 1 D), ORAL
     Route: 048
     Dates: start: 20021219
  2. NIFEDIPINE [Concomitant]
  3. ALPRAZOLAM [Concomitant]
  4. NITROQUICK (GLYCERYL TRINITRATE) [Concomitant]
  5. NITROLINGUAL (GLYCERYL TRINITRATE) [Concomitant]
  6. TOPROL-XL [Concomitant]
  7. CLARINEX [Concomitant]
  8. NASONEX [Concomitant]
  9. ZYRTEC [Concomitant]
  10. CRESTOR [Concomitant]
  11. GOLYTELY (MACROGOL, POTASSIUM CHLORIDE, SODIUM BICARBONATE, SODIUM CHL [Concomitant]
  12. TRIMOX [Concomitant]
  13. PREVACID [Concomitant]
  14. METOPROLOL TARTRATE [Concomitant]
  15. ALL OTHER THERAPEUTIC PRODUCTS (ALL OTHER THERAPEUTIC PRODUCTS) [Concomitant]

REACTIONS (4)
  - CEREBROVASCULAR ACCIDENT [None]
  - GASTRIC ULCER [None]
  - HEMIPARESIS [None]
  - HIATUS HERNIA [None]
